FAERS Safety Report 19964818 (Version 1)
Quarter: 2021Q4

REPORT INFORMATION
  Report Type: Spontaneous
  Country: CA (occurrence: CA)
  Receive Date: 20211018
  Receipt Date: 20211018
  Transmission Date: 20220303
  Serious: Yes (Other)
  Sender: FDA-Public Use
  Company Number: CA-BOEHRINGERINGELHEIM-2021-BI-132741

PATIENT
  Age: 63 Year
  Sex: Female

DRUGS (1)
  1. GILOTRIF [Suspect]
     Active Substance: AFATINIB
     Indication: Non-small cell lung cancer
     Route: 048

REACTIONS (6)
  - Abdominal distension [Unknown]
  - Abdominal pain [Unknown]
  - Abdominal tenderness [Unknown]
  - Diarrhoea [Unknown]
  - Eructation [Unknown]
  - Flatulence [Unknown]
